FAERS Safety Report 16044492 (Version 1)
Quarter: 2019Q1

REPORT INFORMATION
  Report Type: Spontaneous
  Country: GB (occurrence: GB)
  Receive Date: 20190306
  Receipt Date: 20190306
  Transmission Date: 20190418
  Serious: Yes (Other)
  Sender: FDA-Public Use
  Company Number: GB-MYLANLABS-2019M1020883

PATIENT
  Age: 67 Year
  Sex: Female

DRUGS (9)
  1. AMITRIPTYLINE HYDROCHLORIDE. [Concomitant]
     Active Substance: AMITRIPTYLINE HYDROCHLORIDE
  2. FLUOXETINE HYDROCHLORIDE. [Concomitant]
     Active Substance: FLUOXETINE HYDROCHLORIDE
  3. COCODAMOL [Concomitant]
     Active Substance: ACETAMINOPHEN\CODEINE PHOSPHATE
  4. ESOMEPRAZOLE                       /01479302/ [Concomitant]
     Active Substance: ESOMEPRAZOLE
  5. AZITHROMYCIN ANHYDROUS. [Suspect]
     Active Substance: AZITHROMYCIN ANHYDROUS
     Indication: BRONCHIECTASIS
     Dosage: ON A MONDAY, WEDNESDAY AND FRIDAY
     Route: 048
     Dates: start: 20180820, end: 20180820
  6. SALBUTAMOL [Concomitant]
     Active Substance: ALBUTEROL
  7. PARACETAMOL [Concomitant]
     Active Substance: ACETAMINOPHEN
  8. MONTELUKAST SODIUM. [Concomitant]
     Active Substance: MONTELUKAST SODIUM
  9. FOSTAIR [Concomitant]
     Active Substance: BECLOMETHASONE\FORMOTEROL

REACTIONS (2)
  - Ototoxicity [Recovering/Resolving]
  - Dermatitis allergic [Recovering/Resolving]

NARRATIVE: CASE EVENT DATE: 20180821
